FAERS Safety Report 17676429 (Version 1)
Quarter: 2020Q2

REPORT INFORMATION
  Report Type: Spontaneous
  Country: US (occurrence: US)
  Receive Date: 20200416
  Receipt Date: 20200416
  Transmission Date: 20200714
  Serious: Yes (Hospitalization)
  Sender: FDA-Public Use
  Company Number: US-BAYER-2020-059371

PATIENT
  Sex: Male

DRUGS (1)
  1. ALKA-SELTZER PLUS COLD SPARKLING ORIGINAL [Suspect]
     Active Substance: ASPIRIN\CHLORPHENIRAMINE MALEATE\PHENYLEPHRINE BITARTRATE
     Indication: FOOD POISONING
     Dosage: UNK
     Route: 048

REACTIONS (4)
  - Drug ineffective for unapproved indication [Unknown]
  - Expired product administered [Unknown]
  - Nausea [None]
  - Product use in unapproved indication [None]

NARRATIVE: CASE EVENT DATE: 2018
